FAERS Safety Report 6083124-5 (Version None)
Quarter: 2009Q1

REPORT INFORMATION
  Report Type: 
  Country: None (occurrence: None)
  Receive Date: 20090213
  Receipt Date: 20090213
  Transmission Date: 20090719
  Serious: No
  Sender: FDA-Public Use
  Company Number: None

PATIENT
  Sex: Female
  Weight: 48.0813 kg

DRUGS (1)
  1. AMBIEN [Suspect]
     Dosage: #1 HS
     Dates: start: 20080801

REACTIONS (1)
  - NERVOUSNESS [None]
